FAERS Safety Report 4645478-3 (Version None)
Quarter: 2005Q2

REPORT INFORMATION
  Report Type: 
  Country: None (occurrence: None)
  Receive Date: 20050425
  Receipt Date: 20050414
  Transmission Date: 20051028
  Serious: Yes (Hospitalization)
  Sender: FDA-Public Use
  Company Number: 2005-04-0705

PATIENT
  Age: 64 Year
  Sex: Female

DRUGS (2)
  1. CELESTONE [Suspect]
     Dosage: 2 DOSES QD ORAL
     Route: 048
     Dates: start: 20050221, end: 20050225
  2. ZITHROMAX [Suspect]
     Dosage: 2 DOSES QD ORAL
     Route: 048
     Dates: start: 20050221, end: 20050224

REACTIONS (13)
  - ACUTE GENERALISED EXANTHEMATOUS PUSTULOSIS [None]
  - C-REACTIVE PROTEIN INCREASED [None]
  - EXANTHEM [None]
  - GENITAL LESION [None]
  - PRURITUS [None]
  - PUSTULAR PSORIASIS [None]
  - RASH ERYTHEMATOUS [None]
  - RASH PAPULAR [None]
  - RASH PRURITIC [None]
  - RASH PUSTULAR [None]
  - RED BLOOD CELL SEDIMENTATION RATE INCREASED [None]
  - SKIN EXFOLIATION [None]
  - TOXIC SKIN ERUPTION [None]
